FAERS Safety Report 13700914 (Version 1)
Quarter: 2017Q2

REPORT INFORMATION
  Report Type: Spontaneous
  Country: US (occurrence: US)
  Receive Date: 20170628
  Receipt Date: 20170628
  Transmission Date: 20170830
  Serious: Yes (Other)
  Sender: FDA-Public Use
  Company Number: None

PATIENT
  Age: 43 Year
  Sex: Male

DRUGS (4)
  1. VIGAMOX [Suspect]
     Active Substance: MOXIFLOXACIN HYDROCHLORIDE
     Indication: SURGERY
     Dosage: OTHER DOSE:GTT;OTHER FREQUENCY:Q4;?
     Route: 047
     Dates: start: 20170620, end: 20170627
  2. RETAINE MGD [Suspect]
     Active Substance: LIGHT MINERAL OIL\MINERAL OIL
     Indication: SURGERY
     Dosage: ?          OTHER DOSE:GTT;OTHER FREQUENCY:EVERY HOUR;?
     Route: 047
     Dates: start: 20170620, end: 20170627
  3. GENTEAL TEARS [Concomitant]
  4. PREDNISOLONE ACETATE. [Concomitant]
     Active Substance: PREDNISOLONE ACETATE

REACTIONS (2)
  - Corneal infiltrates [None]
  - Eye infection [None]

NARRATIVE: CASE EVENT DATE: 20170624
